FAERS Safety Report 9414091 (Version 1)
Quarter: 2013Q3

REPORT INFORMATION
  Report Type: Spontaneous
  Country: US (occurrence: US)
  Receive Date: 20130723
  Receipt Date: 20130723
  Transmission Date: 20140515
  Serious: No
  Sender: FDA-Public Use
  Company Number: US-BAYER-2013-088744

PATIENT
  Age: 89 Year
  Sex: Female

DRUGS (1)
  1. AVELOX [Suspect]
     Indication: PNEUMONIA ASPIRATION
     Dosage: 400 MG, DAILY
     Route: 048
     Dates: start: 20130716

REACTIONS (1)
  - Wrong technique in drug usage process [None]
